FAERS Safety Report 13132159 (Version 1)
Quarter: 2017Q1

REPORT INFORMATION
  Report Type: Spontaneous
  Country: UA (occurrence: UA)
  Receive Date: 20170119
  Receipt Date: 20170119
  Transmission Date: 20170428
  Serious: Yes (Hospitalization)
  Sender: FDA-Public Use
  Company Number: UA-ASTRAZENECA-2017SE04490

PATIENT
  Age: 16077 Day
  Sex: Male
  Weight: 75 kg

DRUGS (2)
  1. ONGLYZA [Suspect]
     Active Substance: SAXAGLIPTIN HYDROCHLORIDE
     Indication: TYPE 2 DIABETES MELLITUS
     Route: 048
     Dates: end: 20170113
  2. METFORMIN [Concomitant]
     Active Substance: METFORMIN HYDROCHLORIDE
     Route: 048
     Dates: start: 20170112

REACTIONS (4)
  - Visual impairment [Recovering/Resolving]
  - Drug ineffective [Recovering/Resolving]
  - Hyperglycaemia [Unknown]
  - Asthenia [Recovering/Resolving]

NARRATIVE: CASE EVENT DATE: 20170111
